FAERS Safety Report 25492868 (Version 1)
Quarter: 2025Q2

REPORT INFORMATION
  Report Type: Report from Study
  Country: US (occurrence: US)
  Receive Date: 20250630
  Receipt Date: 20250630
  Transmission Date: 20250717
  Serious: Yes (Death, Other)
  Sender: Haleon PLC
  Company Number: US-HALEON-2249585

PATIENT

DRUGS (1)
  1. DICLOFENAC [Suspect]
     Active Substance: DICLOFENAC
     Indication: Product used for unknown indication

REACTIONS (4)
  - Liver disorder [Fatal]
  - Drug-induced liver injury [Unknown]
  - Hepatocellular injury [Unknown]
  - Jaundice [Unknown]
